FAERS Safety Report 11256017 (Version 1)
Quarter: 2015Q3

REPORT INFORMATION
  Report Type: Report from Study
  Country: US (occurrence: US)
  Receive Date: 20150709
  Receipt Date: 20150709
  Transmission Date: 20151125
  Serious: Yes (Other)
  Sender: FDA-Public Use
  Company Number: US-PFIZER INC-2015228202

PATIENT
  Age: 45 Year
  Sex: Female

DRUGS (6)
  1. TECFIDERA [Concomitant]
     Active Substance: DIMETHYL FUMARATE
     Indication: PARAESTHESIA
     Dosage: UNK
  2. AMPYRA [Suspect]
     Active Substance: DALFAMPRIDINE
     Indication: MULTIPLE SCLEROSIS
     Dosage: 10 MG, 2X/DAY (Q 12HRS)
     Route: 048
     Dates: start: 201309
  3. PREDNISONE. [Suspect]
     Active Substance: PREDNISONE
     Indication: PARAESTHESIA
     Dosage: UNK, 2X/DAY (EVERY 12 HOURS)
     Dates: start: 2015, end: 2015
  4. LYRICA [Concomitant]
     Active Substance: PREGABALIN
     Indication: PARAESTHESIA
     Dosage: UNK
  5. SOLU-MEDROL [Suspect]
     Active Substance: METHYLPREDNISOLONE SODIUM SUCCINATE
     Indication: PARAESTHESIA
     Dosage: 1000 MG, UNK
     Dates: start: 2015, end: 2015
  6. GABAPENTIN. [Concomitant]
     Active Substance: GABAPENTIN
     Indication: PARAESTHESIA
     Dosage: 300 MG, 3X/DAY

REACTIONS (7)
  - Condition aggravated [Not Recovered/Not Resolved]
  - Sinusitis [Unknown]
  - Multiple sclerosis relapse [Not Recovered/Not Resolved]
  - Depressed mood [Unknown]
  - Pain in extremity [Unknown]
  - Paraesthesia [Recovering/Resolving]
  - Weight increased [Unknown]

NARRATIVE: CASE EVENT DATE: 201503
